FAERS Safety Report 13948413 (Version 2)
Quarter: 2018Q2

REPORT INFORMATION
  Report Type: Report from Study
  Country: US (occurrence: US)
  Receive Date: 20170908
  Receipt Date: 20180420
  Transmission Date: 20180711
  Serious: Yes (Hospitalization)
  Sender: FDA-Public Use
  Company Number: PHHO2017US012647

PATIENT
  Age: 52 Year
  Sex: Female
  Weight: 44.5 kg

DRUGS (2)
  1. DEXAMETHASONE. [Concomitant]
     Active Substance: DEXAMETHASONE
     Indication: PRODUCT USED FOR UNKNOWN INDICATION
     Route: 065
  2. TYVERB [Suspect]
     Active Substance: LAPATINIB
     Indication: INVASIVE BREAST CARCINOMA
     Dosage: 1000 MG, QD
     Route: 048
     Dates: start: 20170731, end: 20170809

REACTIONS (1)
  - Pyrexia [Recovered/Resolved]

NARRATIVE: CASE EVENT DATE: 20170811
